FAERS Safety Report 19957224 (Version 32)
Quarter: 2022Q4

REPORT INFORMATION
  Report Type: Spontaneous
  Country: CA (occurrence: CA)
  Receive Date: 20211014
  Receipt Date: 20221222
  Transmission Date: 20230113
  Serious: Yes (Life-Threatening, Hospitalization, Other)
  Sender: FDA-Public Use
  Company Number: CA-TAKEDA-2021TUS058389

PATIENT
  Age: 77 Year
  Sex: Female

DRUGS (491)
  1. GALANTAMINE HYDROBROMIDE [Suspect]
     Active Substance: GALANTAMINE HYDROBROMIDE
     Indication: Dementia
     Dosage: 16 MILLIGRAM, QD
     Route: 065
  2. GALANTAMINE HYDROBROMIDE [Suspect]
     Active Substance: GALANTAMINE HYDROBROMIDE
     Dosage: 200 MILLIGRAM, QD
     Route: 065
  3. GALANTAMINE HYDROBROMIDE [Suspect]
     Active Substance: GALANTAMINE HYDROBROMIDE
     Dosage: 360 MILLIGRAM, QD
     Route: 065
  4. GALANTAMINE HYDROBROMIDE [Suspect]
     Active Substance: GALANTAMINE HYDROBROMIDE
     Dosage: 18 MILLIGRAM, QD
     Route: 065
  5. GALANTAMINE HYDROBROMIDE [Suspect]
     Active Substance: GALANTAMINE HYDROBROMIDE
     Dosage: 1000 MILLIGRAM, BID
     Route: 065
  6. GALANTAMINE HYDROBROMIDE [Suspect]
     Active Substance: GALANTAMINE HYDROBROMIDE
     Dosage: 16 MILLIGRAM
     Route: 065
  7. CARBAMAZEPINE [Suspect]
     Active Substance: CARBAMAZEPINE
     Indication: Seizure
     Dosage: 100 MILLIGRAM, BID
     Route: 065
  8. CARBAMAZEPINE [Suspect]
     Active Substance: CARBAMAZEPINE
     Indication: Seizure prophylaxis
     Dosage: 200 MILLIGRAM, BID
     Route: 065
  9. CARBAMAZEPINE [Suspect]
     Active Substance: CARBAMAZEPINE
     Indication: Fibromyalgia
     Dosage: 500 MILLIGRAM, QD
     Route: 065
  10. CARBAMAZEPINE [Suspect]
     Active Substance: CARBAMAZEPINE
     Indication: Prophylaxis
     Dosage: 100 MILLIGRAM, QD
     Route: 065
  11. CARBAMAZEPINE [Suspect]
     Active Substance: CARBAMAZEPINE
     Dosage: 200 MILLIGRAM, QD
     Route: 065
  12. CARBAMAZEPINE [Suspect]
     Active Substance: CARBAMAZEPINE
     Dosage: 400 MILLIGRAM, QD
     Route: 065
  13. CARBAMAZEPINE [Suspect]
     Active Substance: CARBAMAZEPINE
     Dosage: 400 MILLIGRAM
     Route: 065
  14. CARBAMAZEPINE [Suspect]
     Active Substance: CARBAMAZEPINE
     Dosage: 2 DOSAGE FORM, QD
     Route: 065
  15. CARBAMAZEPINE [Suspect]
     Active Substance: CARBAMAZEPINE
     Dosage: 2 MILLIGRAM
     Route: 065
  16. CARBAMAZEPINE [Suspect]
     Active Substance: CARBAMAZEPINE
     Dosage: 200 MILLIGRAM, Q12H
     Route: 065
  17. CARBAMAZEPINE [Suspect]
     Active Substance: CARBAMAZEPINE
     Dosage: UNK, Q12H
     Route: 065
  18. CARBAMAZEPINE [Suspect]
     Active Substance: CARBAMAZEPINE
     Dosage: 1 DOSAGE FORM, QD
     Route: 065
  19. CARBAMAZEPINE [Suspect]
     Active Substance: CARBAMAZEPINE
     Dosage: 100 MILLIGRAM
     Route: 065
  20. CARBAMAZEPINE [Suspect]
     Active Substance: CARBAMAZEPINE
     Dosage: 200 MILLIGRAM
     Route: 065
  21. CARBAMAZEPINE [Suspect]
     Active Substance: CARBAMAZEPINE
     Dosage: UNK
     Route: 065
  22. CARBAMAZEPINE [Suspect]
     Active Substance: CARBAMAZEPINE
     Dosage: 400 MILLIGRAM, BID
     Route: 065
  23. CARBAMAZEPINE [Suspect]
     Active Substance: CARBAMAZEPINE
     Dosage: 800 MILLIGRAM, BID
     Route: 065
  24. CARBAMAZEPINE [Suspect]
     Active Substance: CARBAMAZEPINE
     Dosage: 2 DOSAGE FORM, Q12H
     Route: 065
  25. CARBAMAZEPINE [Suspect]
     Active Substance: CARBAMAZEPINE
     Dosage: 1 DOSAGE FORM, Q12H
     Route: 065
  26. CARBAMAZEPINE [Suspect]
     Active Substance: CARBAMAZEPINE
     Dosage: 800 MILLIGRAM, BID
     Route: 065
  27. CARBAMAZEPINE [Suspect]
     Active Substance: CARBAMAZEPINE
     Dosage: 100 MILLIGRAM, Q12H
     Route: 065
  28. CARBAMAZEPINE [Suspect]
     Active Substance: CARBAMAZEPINE
     Dosage: 5 MILLIGRAM, Q8HR
     Route: 065
  29. CARBAMAZEPINE [Suspect]
     Active Substance: CARBAMAZEPINE
     Dosage: 400 MILLIGRAM, Q12H
     Route: 065
  30. CARBAMAZEPINE [Suspect]
     Active Substance: CARBAMAZEPINE
     Dosage: 200 MILLIGRAM, QOD
     Route: 065
  31. CALCIUM CARBONATE [Suspect]
     Active Substance: CALCIUM CARBONATE
     Indication: Product used for unknown indication
     Dosage: UNK
     Route: 065
  32. CALCIUM [Suspect]
     Active Substance: CALCIUM
     Indication: Product used for unknown indication
     Dosage: UNK
     Route: 065
  33. AMLODIPINE [Suspect]
     Active Substance: AMLODIPINE BESYLATE
     Indication: Hypertension
     Dosage: 5 MILLIGRAM, QD
     Route: 065
  34. AMLODIPINE [Suspect]
     Active Substance: AMLODIPINE BESYLATE
     Indication: Coronary artery disease
     Dosage: 50 MILLIGRAM, QD
     Route: 065
  35. AMLODIPINE [Suspect]
     Active Substance: AMLODIPINE BESYLATE
     Indication: Angina pectoris
     Dosage: 75 MILLIGRAM, QD
     Route: 065
  36. AMLODIPINE [Suspect]
     Active Substance: AMLODIPINE BESYLATE
     Indication: Chest pain
     Dosage: 5 MILLIGRAM, QD
     Route: 065
  37. AMLODIPINE [Suspect]
     Active Substance: AMLODIPINE BESYLATE
     Indication: Constipation
  38. ACETAMINOPHEN\CODEINE PHOSPHATE [Suspect]
     Active Substance: ACETAMINOPHEN\CODEINE PHOSPHATE
     Indication: Fibromyalgia
     Dosage: 650 MILLIGRAM
     Route: 065
  39. AMLODIPINE BESYLATE [Suspect]
     Active Substance: AMLODIPINE BESYLATE
     Indication: Coronary artery disease
     Dosage: 5 MILLIGRAM, QD
     Route: 065
  40. AMLODIPINE BESYLATE [Suspect]
     Active Substance: AMLODIPINE BESYLATE
     Indication: Hypertension
     Dosage: 50 MILLIGRAM, QD
     Route: 065
  41. AMLODIPINE BESYLATE [Suspect]
     Active Substance: AMLODIPINE BESYLATE
     Indication: Angina pectoris
     Dosage: UNK
     Route: 065
  42. AMLODIPINE BESYLATE [Suspect]
     Active Substance: AMLODIPINE BESYLATE
     Indication: Constipation
  43. AMLODIPINE BESYLATE [Suspect]
     Active Substance: AMLODIPINE BESYLATE
     Indication: Chest pain
  44. ASPIRIN [Suspect]
     Active Substance: ASPIRIN
     Indication: Hypertension
     Dosage: 5 MILLIGRAM, Q8HR
     Route: 065
  45. ASPIRIN [Suspect]
     Active Substance: ASPIRIN
     Indication: Coronary artery disease
  46. ASPIRIN [Suspect]
     Active Substance: ASPIRIN
     Indication: Angina pectoris
  47. MORPHINE [Suspect]
     Active Substance: MORPHINE
     Indication: Pain
     Dosage: 2 DOSAGE FORM, QD
     Route: 065
  48. MORPHINE [Suspect]
     Active Substance: MORPHINE
     Indication: Fibromyalgia
     Dosage: 10 MILLIGRAM
     Route: 065
  49. MORPHINE [Suspect]
     Active Substance: MORPHINE
     Indication: Chest pain
     Dosage: 1 DOSAGE FORM, QD
     Route: 065
  50. MORPHINE [Suspect]
     Active Substance: MORPHINE
     Dosage: 20 MILLIGRAM
     Route: 065
  51. MORPHINE [Suspect]
     Active Substance: MORPHINE
     Dosage: UNK
     Route: 065
  52. MORPHINE [Suspect]
     Active Substance: MORPHINE
     Dosage: 10 MILLIGRAM, QD
     Route: 065
  53. DILTIAZEM HYDROCHLORIDE [Suspect]
     Active Substance: DILTIAZEM HYDROCHLORIDE
     Indication: Hypertension
     Dosage: 360 MILLIGRAM, QD
     Route: 065
  54. DILTIAZEM HYDROCHLORIDE [Suspect]
     Active Substance: DILTIAZEM HYDROCHLORIDE
     Indication: Coronary artery disease
     Dosage: 15 MILLIGRAM, QD
     Route: 065
  55. DILTIAZEM HYDROCHLORIDE [Suspect]
     Active Substance: DILTIAZEM HYDROCHLORIDE
     Indication: Angina pectoris
     Dosage: 36 MILLIGRAM, QD
     Route: 065
  56. DILTIAZEM HYDROCHLORIDE [Suspect]
     Active Substance: DILTIAZEM HYDROCHLORIDE
     Indication: Chest pain
     Dosage: 500 MILLIGRAM, QD
     Route: 065
  57. DILTIAZEM HYDROCHLORIDE [Suspect]
     Active Substance: DILTIAZEM HYDROCHLORIDE
     Dosage: UNK
     Route: 065
  58. DILTIAZEM HYDROCHLORIDE [Suspect]
     Active Substance: DILTIAZEM HYDROCHLORIDE
     Dosage: 300 MILLIGRAM, QD
     Route: 065
  59. DILTIAZEM HYDROCHLORIDE [Suspect]
     Active Substance: DILTIAZEM HYDROCHLORIDE
     Dosage: 360 MILLIGRAM
     Route: 065
  60. DILTIAZEM HYDROCHLORIDE [Suspect]
     Active Substance: DILTIAZEM HYDROCHLORIDE
     Dosage: 369 MILLIGRAM, QD
     Route: 065
  61. DILTIAZEM HYDROCHLORIDE [Suspect]
     Active Substance: DILTIAZEM HYDROCHLORIDE
     Dosage: 2 DOSAGE FORM, QD
     Route: 065
  62. ACEBUTOLOL HYDROCHLORIDE [Suspect]
     Active Substance: ACEBUTOLOL HYDROCHLORIDE
     Indication: Hypertension
     Dosage: 200 MILLIGRAM, QD
     Route: 065
  63. ACEBUTOLOL HYDROCHLORIDE [Suspect]
     Active Substance: ACEBUTOLOL HYDROCHLORIDE
     Indication: Coronary artery disease
     Dosage: 400 MILLIGRAM, QD
     Route: 065
  64. ACEBUTOLOL HYDROCHLORIDE [Suspect]
     Active Substance: ACEBUTOLOL HYDROCHLORIDE
     Indication: Chest pain
     Dosage: 100 MILLIGRAM, QD
     Route: 065
  65. ACEBUTOLOL HYDROCHLORIDE [Suspect]
     Active Substance: ACEBUTOLOL HYDROCHLORIDE
     Indication: Angina pectoris
     Dosage: 100 MILLIGRAM, BID
     Route: 065
  66. ACEBUTOLOL HYDROCHLORIDE [Suspect]
     Active Substance: ACEBUTOLOL HYDROCHLORIDE
     Dosage: 200 MILLIGRAM, BID
     Route: 065
  67. ACEBUTOLOL HYDROCHLORIDE [Suspect]
     Active Substance: ACEBUTOLOL HYDROCHLORIDE
     Dosage: 400 MILLIGRAM, Q12H
     Route: 065
  68. ACEBUTOLOL HYDROCHLORIDE [Suspect]
     Active Substance: ACEBUTOLOL HYDROCHLORIDE
     Dosage: 400 MILLIGRAM, 1/WEEK
     Route: 065
  69. ACEBUTOLOL HYDROCHLORIDE [Suspect]
     Active Substance: ACEBUTOLOL HYDROCHLORIDE
     Dosage: UNK
     Route: 065
  70. ACEBUTOLOL HYDROCHLORIDE [Suspect]
     Active Substance: ACEBUTOLOL HYDROCHLORIDE
     Dosage: 200 MILLIGRAM
     Route: 065
  71. ACEBUTOLOL HYDROCHLORIDE [Suspect]
     Active Substance: ACEBUTOLOL HYDROCHLORIDE
     Dosage: 100 MILLIGRAM, Q12H
     Route: 065
  72. ACEBUTOLOL HYDROCHLORIDE [Suspect]
     Active Substance: ACEBUTOLOL HYDROCHLORIDE
     Dosage: 100 MILLIGRAM, QOD
     Route: 065
  73. ACEBUTOLOL HYDROCHLORIDE [Suspect]
     Active Substance: ACEBUTOLOL HYDROCHLORIDE
     Dosage: 100 MILLIGRAM
     Route: 065
  74. ACEBUTOLOL HYDROCHLORIDE [Suspect]
     Active Substance: ACEBUTOLOL HYDROCHLORIDE
     Dosage: 200 MILLIGRAM, Q12H
     Route: 065
  75. ACEBUTOLOL HYDROCHLORIDE [Suspect]
     Active Substance: ACEBUTOLOL HYDROCHLORIDE
     Dosage: 200 MILLIGRAM, 1/WEEK
     Route: 065
  76. ACEBUTOLOL HYDROCHLORIDE [Suspect]
     Active Substance: ACEBUTOLOL HYDROCHLORIDE
     Dosage: 200 MILLIGRAM, 2/WEEK
     Route: 065
  77. ACETAMINOPHEN [Suspect]
     Active Substance: ACETAMINOPHEN
     Indication: Pain
     Dosage: 650 MILLIGRAM, QD
     Route: 065
  78. ACETAMINOPHEN [Suspect]
     Active Substance: ACETAMINOPHEN
     Indication: Fibromyalgia
     Dosage: 600 MILLIGRAM, QD
     Route: 065
  79. ACETAMINOPHEN [Suspect]
     Active Substance: ACETAMINOPHEN
     Dosage: 650 MILLIGRAM, Q4HR
     Route: 065
  80. ACETAMINOPHEN [Suspect]
     Active Substance: ACETAMINOPHEN
     Dosage: 650 MILLIGRAM
     Route: 065
  81. ACETAMINOPHEN\CAFFEINE [Suspect]
     Active Substance: ACETAMINOPHEN\CAFFEINE
     Indication: Pain
     Dosage: 650 MILLIGRAM, QD
     Route: 065
  82. ACETAMINOPHEN\CAFFEINE [Suspect]
     Active Substance: ACETAMINOPHEN\CAFFEINE
     Indication: Angina pectoris
     Dosage: 60 MILLIGRAM, QD
     Route: 065
  83. ACETAMINOPHEN\CAFFEINE [Suspect]
     Active Substance: ACETAMINOPHEN\CAFFEINE
     Indication: Chest pain
     Dosage: 600 MILLIGRAM, QD
     Route: 065
  84. ACETAMINOPHEN\CAFFEINE [Suspect]
     Active Substance: ACETAMINOPHEN\CAFFEINE
     Indication: Coronary artery disease
     Dosage: 50 MILLIGRAM, QD
     Route: 065
  85. ACETAMINOPHEN\CAFFEINE [Suspect]
     Active Substance: ACETAMINOPHEN\CAFFEINE
     Indication: Hypertension
     Dosage: 60 MILLIGRAM
     Route: 065
  86. DOCUSATE SODIUM [Suspect]
     Active Substance: DOCUSATE SODIUM
     Indication: Constipation
     Dosage: UNK, QD
     Route: 065
  87. FUROSEMIDE [Suspect]
     Active Substance: FUROSEMIDE
     Indication: Oedema
     Dosage: 40 MILLIGRAM, QD
     Route: 065
  88. FUROSEMIDE [Suspect]
     Active Substance: FUROSEMIDE
     Indication: Coronary artery disease
     Dosage: 4 MILLIGRAM, QD
     Route: 065
  89. FUROSEMIDE [Suspect]
     Active Substance: FUROSEMIDE
     Indication: Chest pain
     Dosage: UNK
     Route: 065
  90. FUROSEMIDE [Suspect]
     Active Substance: FUROSEMIDE
     Indication: Angina pectoris
     Dosage: 20 MILLIGRAM
     Route: 065
  91. FUROSEMIDE [Suspect]
     Active Substance: FUROSEMIDE
     Dosage: 40 MILLIGRAM
     Route: 061
  92. FUROSEMIDE [Suspect]
     Active Substance: FUROSEMIDE
     Dosage: 40 MILLIGRAM, QD
     Route: 061
  93. AMITRIPTYLINE HYDROCHLORIDE [Suspect]
     Active Substance: AMITRIPTYLINE HYDROCHLORIDE
     Indication: Insomnia
     Dosage: 75 MILLIGRAM, QD
     Route: 065
  94. AMITRIPTYLINE HYDROCHLORIDE [Suspect]
     Active Substance: AMITRIPTYLINE HYDROCHLORIDE
     Indication: Angina pectoris
     Dosage: 75 MILLIGRAM, QD
     Route: 065
  95. AMITRIPTYLINE HYDROCHLORIDE [Suspect]
     Active Substance: AMITRIPTYLINE HYDROCHLORIDE
     Dosage: UNK UNK, QD
     Route: 065
  96. AMITRIPTYLINE HYDROCHLORIDE [Suspect]
     Active Substance: AMITRIPTYLINE HYDROCHLORIDE
     Dosage: 40 MILLIGRAM, QD
     Route: 065
  97. AMITRIPTYLINE HYDROCHLORIDE [Suspect]
     Active Substance: AMITRIPTYLINE HYDROCHLORIDE
     Dosage: 50 MILLIGRAM, QD
     Route: 065
  98. AMITRIPTYLINE HYDROCHLORIDE [Suspect]
     Active Substance: AMITRIPTYLINE HYDROCHLORIDE
     Dosage: UNK
     Route: 065
  99. DILTIAZEM HYDROCHLORIDE [Suspect]
     Active Substance: DILTIAZEM HYDROCHLORIDE
     Indication: Hypertension
     Dosage: 500 MILLIGRAM, QD
     Route: 065
  100. DILTIAZEM HYDROCHLORIDE [Suspect]
     Active Substance: DILTIAZEM HYDROCHLORIDE
     Indication: Coronary artery disease
     Dosage: 360 MILLIGRAM, QD
     Route: 065
  101. DILTIAZEM HYDROCHLORIDE [Suspect]
     Active Substance: DILTIAZEM HYDROCHLORIDE
     Indication: Chest pain
     Dosage: 500 MILLIGRAM, QD
     Route: 065
  102. DILTIAZEM HYDROCHLORIDE [Suspect]
     Active Substance: DILTIAZEM HYDROCHLORIDE
     Indication: Angina pectoris
  103. ALBUTEROL [Suspect]
     Active Substance: ALBUTEROL
     Indication: Chest pain
     Dosage: 400 MILLIGRAM, Q6HR
     Route: 065
  104. ALBUTEROL [Suspect]
     Active Substance: ALBUTEROL
     Indication: Angina pectoris
     Dosage: 200 MICROGRAM, QD
     Route: 065
  105. ALBUTEROL [Suspect]
     Active Substance: ALBUTEROL
     Indication: Hypertension
     Dosage: 100 MILLIGRAM, QD
     Route: 065
  106. ALBUTEROL [Suspect]
     Active Substance: ALBUTEROL
     Indication: Coronary artery disease
     Dosage: UNK
     Route: 065
  107. ALBUTEROL [Suspect]
     Active Substance: ALBUTEROL
     Dosage: 800 MICROGRAM, QD
     Route: 065
  108. ALBUTEROL [Suspect]
     Active Substance: ALBUTEROL
     Dosage: UNK
     Route: 065
  109. ALBUTEROL [Suspect]
     Active Substance: ALBUTEROL
     Dosage: 400 MILLIGRAM, QD
     Route: 065
  110. ALBUTEROL [Suspect]
     Active Substance: ALBUTEROL
     Dosage: 200 MICROGRAM, Q8HR
     Route: 065
  111. ALBUTEROL [Suspect]
     Active Substance: ALBUTEROL
     Dosage: 200 MILLIGRAM, Q8HR
     Route: 065
  112. ALBUTEROL [Suspect]
     Active Substance: ALBUTEROL
     Dosage: 100 MICROGRAM, QD
     Route: 065
  113. CYCLOBENZAPRINE [Suspect]
     Active Substance: CYCLOBENZAPRINE
     Indication: Fibromyalgia
     Dosage: 5 MILLIGRAM, Q8HR
     Route: 065
  114. CYCLOBENZAPRINE [Suspect]
     Active Substance: CYCLOBENZAPRINE
     Dosage: 5 MILLIGRAM
     Route: 065
  115. CYCLOBENZAPRINE [Suspect]
     Active Substance: CYCLOBENZAPRINE
     Dosage: 15 MILLIGRAM, QD
     Route: 065
  116. CYCLOBENZAPRINE [Suspect]
     Active Substance: CYCLOBENZAPRINE
     Dosage: UNK
     Route: 065
  117. CYCLOBENZAPRINE [Suspect]
     Active Substance: CYCLOBENZAPRINE
     Dosage: 5 MILLIGRAM, TID
     Route: 065
  118. OXAZEPAM [Suspect]
     Active Substance: OXAZEPAM
     Indication: Insomnia
     Dosage: 15 MILLIGRAM, QD
     Route: 065
  119. OXAZEPAM [Suspect]
     Active Substance: OXAZEPAM
     Dosage: 15 MILLIGRAM, QD
     Route: 065
  120. OXAZEPAM [Suspect]
     Active Substance: OXAZEPAM
     Dosage: 15 MILLIGRAM, QD
     Route: 065
  121. OXAZEPAM [Suspect]
     Active Substance: OXAZEPAM
     Dosage: UNK UNK, QD
     Route: 065
  122. OXAZEPAM [Suspect]
     Active Substance: OXAZEPAM
     Dosage: UNK
     Route: 065
  123. CARBAMAZEPINE [Suspect]
     Active Substance: CARBAMAZEPINE
     Indication: Prophylaxis
     Dosage: 200 MILLIGRAM, Q12H
     Route: 065
  124. CARBAMAZEPINE [Suspect]
     Active Substance: CARBAMAZEPINE
     Dosage: 200 MILLIGRAM, QD
     Route: 065
  125. CARBAMAZEPINE [Suspect]
     Active Substance: CARBAMAZEPINE
     Dosage: 200 MILLIGRAM, BID
     Route: 065
  126. CARBAMAZEPINE [Suspect]
     Active Substance: CARBAMAZEPINE
     Dosage: 400 MILLIGRAM, BID
     Route: 065
  127. CARBAMAZEPINE [Suspect]
     Active Substance: CARBAMAZEPINE
     Dosage: 5 MILLIGRAM, Q12H
     Route: 065
  128. CARBAMAZEPINE [Suspect]
     Active Substance: CARBAMAZEPINE
     Dosage: UNK
     Route: 065
  129. GLUCOSAMINE [Suspect]
     Active Substance: GLUCOSAMINE
     Indication: Arthritis
     Dosage: 500 MILLIGRAM, BID
     Route: 065
  130. GLUCOSAMINE [Suspect]
     Active Substance: GLUCOSAMINE
     Indication: Pain
     Dosage: 1000 MILLIGRAM, QD
     Route: 065
  131. GLUCOSAMINE [Suspect]
     Active Substance: GLUCOSAMINE
     Dosage: 500 MILLIGRAM, Q1HR
     Route: 065
  132. GLUCOSAMINE [Suspect]
     Active Substance: GLUCOSAMINE
     Dosage: 500 MILLIGRAM, QD
     Route: 065
  133. GLUCOSAMINE [Suspect]
     Active Substance: GLUCOSAMINE
     Dosage: 250 MILLIGRAM, QD
     Route: 065
  134. GLUCOSAMINE [Suspect]
     Active Substance: GLUCOSAMINE
     Dosage: 500 MILLIGRAM, Q12H
     Route: 065
  135. GLUCOSAMINE [Suspect]
     Active Substance: GLUCOSAMINE
     Dosage: UNK
     Route: 065
  136. GLUCOSAMINE [Suspect]
     Active Substance: GLUCOSAMINE
     Dosage: 1000 MILLIGRAM, Q12H
     Route: 065
  137. GLUCOSAMINE [Suspect]
     Active Substance: GLUCOSAMINE
     Dosage: 500 MILLIGRAM
     Route: 065
  138. GLUCOSAMINE [Suspect]
     Active Substance: GLUCOSAMINE
     Dosage: 0.4 MILLIGRAM, QD
     Route: 065
  139. LACTULOSE [Suspect]
     Active Substance: LACTULOSE
     Indication: Constipation
     Dosage: 15 MILLILITER, QD
     Route: 048
  140. LACTULOSE [Suspect]
     Active Substance: LACTULOSE
     Indication: Thyroid disorder
     Dosage: 15 MILLIGRAM, QD
     Route: 065
  141. LACTULOSE [Suspect]
     Active Substance: LACTULOSE
     Indication: Radioactive iodine therapy
     Dosage: UNK
     Route: 048
  142. LACTULOSE [Suspect]
     Active Substance: LACTULOSE
     Dosage: 15 MILLIGRAM, QD
     Route: 048
  143. LACTULOSE [Suspect]
     Active Substance: LACTULOSE
     Dosage: UNK
     Route: 065
  144. LACTULOSE [Suspect]
     Active Substance: LACTULOSE
     Dosage: 15 MILLILITER
     Route: 065
  145. LEVOTHYROXINE SODIUM [Suspect]
     Active Substance: LEVOTHYROXINE SODIUM
     Indication: Thyroid disorder
     Dosage: 0.8 MILLIGRAM, QD
     Route: 065
  146. LEVOTHYROXINE SODIUM [Suspect]
     Active Substance: LEVOTHYROXINE SODIUM
     Indication: Radioactive iodine therapy
     Dosage: 0.88 MILLIGRAM, QD
     Route: 048
  147. LEVOTHYROXINE SODIUM [Suspect]
     Active Substance: LEVOTHYROXINE SODIUM
     Indication: Constipation
     Dosage: 0.088 MILLIGRAM, QD
     Route: 048
  148. LEVOTHYROXINE SODIUM [Suspect]
     Active Substance: LEVOTHYROXINE SODIUM
     Indication: Urinary tract infection
     Dosage: 1 DOSAGE FORM, BID
     Route: 065
  149. LEVOTHYROXINE SODIUM [Suspect]
     Active Substance: LEVOTHYROXINE SODIUM
     Dosage: 1244 MILLIGRAM, QD
     Route: 065
  150. LEVOTHYROXINE SODIUM [Suspect]
     Active Substance: LEVOTHYROXINE SODIUM
     Dosage: 8 MILLIGRAM, QD
     Route: 065
  151. LEVOTHYROXINE SODIUM [Suspect]
     Active Substance: LEVOTHYROXINE SODIUM
     Dosage: UNK
     Route: 065
  152. LEVOTHYROXINE SODIUM [Suspect]
     Active Substance: LEVOTHYROXINE SODIUM
     Dosage: 622 MILLIGRAM, Q12H
     Route: 065
  153. LEVOTHYROXINE SODIUM [Suspect]
     Active Substance: LEVOTHYROXINE SODIUM
     Dosage: 622 MILLIGRAM, Q12H
     Route: 065
  154. LEVOTHYROXINE SODIUM [Suspect]
     Active Substance: LEVOTHYROXINE SODIUM
     Dosage: 0.09 MILLIGRAM, QD
     Route: 065
  155. LEVOTHYROXINE SODIUM [Suspect]
     Active Substance: LEVOTHYROXINE SODIUM
     Dosage: 0.088 MILLIGRAM
     Route: 065
  156. LEVOTHYROXINE SODIUM [Suspect]
     Active Substance: LEVOTHYROXINE SODIUM
     Dosage: 0.088 MILLIGRAM, QD
     Route: 065
  157. OMEPRAZOLE [Suspect]
     Active Substance: OMEPRAZOLE
     Indication: Duodenal ulcer
     Dosage: 20 MILLIGRAM, QD
     Route: 048
  158. OMEPRAZOLE [Suspect]
     Active Substance: OMEPRAZOLE
     Indication: Hypertension
     Dosage: UNK
     Route: 048
  159. OMEPRAZOLE [Suspect]
     Active Substance: OMEPRAZOLE
     Indication: Coronary artery disease
     Dosage: UNK, QD
     Route: 048
  160. OMEPRAZOLE [Suspect]
     Active Substance: OMEPRAZOLE
     Indication: Chest pain
     Dosage: 20 MILLIGRAM, BID
     Route: 048
  161. OMEPRAZOLE [Suspect]
     Active Substance: OMEPRAZOLE
     Indication: Angina pectoris
     Dosage: 20 MILLIGRAM, Q12H
     Route: 048
  162. OMEPRAZOLE [Suspect]
     Active Substance: OMEPRAZOLE
     Indication: Small intestine carcinoma
     Dosage: 20 MILLIGRAM
     Route: 065
  163. OXAZEPAM [Suspect]
     Active Substance: OXAZEPAM
     Indication: Coronary artery disease
     Dosage: 15 MILLIGRAM, QD
     Route: 048
  164. OXAZEPAM [Suspect]
     Active Substance: OXAZEPAM
     Indication: Insomnia
     Dosage: 1 DOSAGE FORM, QD
     Route: 065
  165. OXAZEPAM [Suspect]
     Active Substance: OXAZEPAM
     Indication: Hypertension
     Dosage: 40 MILLIGRAM, QD
     Route: 065
  166. OXAZEPAM [Suspect]
     Active Substance: OXAZEPAM
     Indication: Cerebrovascular accident
     Dosage: 20 MILLIGRAM, QD
     Route: 065
  167. OXAZEPAM [Suspect]
     Active Substance: OXAZEPAM
     Indication: Duodenal ulcer
     Dosage: 15 MILLIGRAM, QD
     Route: 065
  168. OXAZEPAM [Suspect]
     Active Substance: OXAZEPAM
     Indication: Angina pectoris
     Dosage: 100 MILLIGRAM, Q12H
     Route: 065
  169. OXAZEPAM [Suspect]
     Active Substance: OXAZEPAM
     Dosage: 40 MILLIGRAM, QD
     Route: 048
  170. OXAZEPAM [Suspect]
     Active Substance: OXAZEPAM
     Dosage: UNK
     Route: 048
  171. OXAZEPAM [Suspect]
     Active Substance: OXAZEPAM
     Dosage: 20 MILLIGRAM, QD
     Route: 048
  172. ACCUPRIL [Suspect]
     Active Substance: QUINAPRIL HYDROCHLORIDE
     Indication: Coronary artery disease
     Dosage: 40 MILLIGRAM, QD
     Route: 065
  173. ACCUPRIL [Suspect]
     Active Substance: QUINAPRIL HYDROCHLORIDE
     Indication: Hypertension
     Dosage: 20 MILLIGRAM, QD
     Route: 065
  174. ACCUPRIL [Suspect]
     Active Substance: QUINAPRIL HYDROCHLORIDE
     Indication: Chest pain
  175. ACCUPRIL [Suspect]
     Active Substance: QUINAPRIL HYDROCHLORIDE
     Indication: Angina pectoris
  176. ROSUVASTATIN [Suspect]
     Active Substance: ROSUVASTATIN
     Indication: Cerebrovascular accident
     Dosage: 200 MILLIGRAM, BID
     Route: 048
  177. ROSUVASTATIN [Suspect]
     Active Substance: ROSUVASTATIN
     Indication: Chronic obstructive pulmonary disease
     Dosage: 40 MILLIGRAM, QD
     Route: 048
  178. ROSUVASTATIN [Suspect]
     Active Substance: ROSUVASTATIN
     Indication: Chest pain
     Dosage: 5 MILLIGRAM
     Route: 065
  179. ROSUVASTATIN [Suspect]
     Active Substance: ROSUVASTATIN
     Indication: Angina pectoris
     Dosage: UNK
     Route: 048
  180. ROSUVASTATIN [Suspect]
     Active Substance: ROSUVASTATIN
     Indication: Hypertension
     Dosage: 20 MILLIGRAM, BID
     Route: 048
     Dates: start: 2008
  181. ROSUVASTATIN [Suspect]
     Active Substance: ROSUVASTATIN
     Indication: Insomnia
     Dosage: 20 MILLIGRAM, QD
     Route: 065
  182. ROSUVASTATIN [Suspect]
     Active Substance: ROSUVASTATIN
     Dosage: 20 MILLIGRAM, Q12H
     Route: 048
     Dates: start: 2008
  183. ROSUVASTATIN [Suspect]
     Active Substance: ROSUVASTATIN
     Dosage: UNK
     Route: 065
  184. ROSUVASTATIN [Suspect]
     Active Substance: ROSUVASTATIN
     Dosage: 10 MILLIGRAM, QD
     Route: 065
  185. ROSUVASTATIN [Suspect]
     Active Substance: ROSUVASTATIN
     Dosage: 40 MILLIGRAM, BID
     Route: 048
  186. ROSUVASTATIN [Suspect]
     Active Substance: ROSUVASTATIN
     Dosage: 1.666 MILLIGRAM Q12 DAY
     Route: 065
  187. ROSUVASTATIN [Suspect]
     Active Substance: ROSUVASTATIN
     Dosage: 400 MILLIGRAM, QD
     Route: 048
     Dates: start: 2008
  188. ROSUVASTATIN [Suspect]
     Active Substance: ROSUVASTATIN
     Dosage: UNK
     Route: 058
  189. ROSUVASTATIN [Suspect]
     Active Substance: ROSUVASTATIN
     Dosage: 20 MILLIGRAM, Q12H
     Route: 065
     Dates: start: 2008
  190. ROSUVASTATIN [Suspect]
     Active Substance: ROSUVASTATIN
     Dosage: 200 MILLIGRAM, Q12H
     Route: 048
  191. ROSUVASTATIN [Suspect]
     Active Substance: ROSUVASTATIN
     Dosage: 20 MILLIGRAM, QOD
     Route: 065
  192. MORPHINE SULFATE [Suspect]
     Active Substance: MORPHINE SULFATE
     Indication: Pain
     Dosage: 10 MILLIGRAM, QD
     Route: 065
  193. MORPHINE SULFATE [Suspect]
     Active Substance: MORPHINE SULFATE
     Indication: Fibromyalgia
     Dosage: 10 MILLIGRAM, QD
     Route: 030
  194. MORPHINE SULFATE [Suspect]
     Active Substance: MORPHINE SULFATE
     Indication: Chest pain
     Dosage: 20 MILLIGRAM, QD
     Route: 030
  195. MORPHINE SULFATE [Suspect]
     Active Substance: MORPHINE SULFATE
     Dosage: 2 DOSAGE FORM, QD
     Route: 065
  196. MORPHINE SULFATE [Suspect]
     Active Substance: MORPHINE SULFATE
     Dosage: UNK
     Route: 065
  197. MORPHINE SULFATE [Suspect]
     Active Substance: MORPHINE SULFATE
     Dosage: 100 MILLIGRAM, QD
     Route: 065
  198. MORPHINE SULFATE [Suspect]
     Active Substance: MORPHINE SULFATE
     Dosage: 1 DOSAGE FORM, QD
     Route: 065
  199. MORPHINE SULFATE [Suspect]
     Active Substance: MORPHINE SULFATE
     Dosage: UNK
     Route: 030
  200. ALUMINUM HYDROXIDE\MAGNESIUM HYDROXIDE [Suspect]
     Active Substance: ALUMINUM HYDROXIDE\MAGNESIUM HYDROXIDE
     Indication: Constipation
     Dosage: 620 MILLIGRAM, BID
     Route: 065
  201. DIPYRIDAMOLE [Suspect]
     Active Substance: DIPYRIDAMOLE
     Indication: Cerebrovascular accident
     Dosage: 1 DOSAGE FORM, BID
     Route: 065
     Dates: start: 2008
  202. DIPYRIDAMOLE [Suspect]
     Active Substance: DIPYRIDAMOLE
     Dosage: 2 DOSAGE FORM, QD
     Route: 048
  203. DIPYRIDAMOLE [Suspect]
     Active Substance: DIPYRIDAMOLE
     Dosage: UNK, QD
     Route: 065
  204. DIPYRIDAMOLE [Suspect]
     Active Substance: DIPYRIDAMOLE
     Dosage: 0.5 DOSAGE FORM
     Route: 065
  205. DIPYRIDAMOLE [Suspect]
     Active Substance: DIPYRIDAMOLE
     Dosage: 1 DOSAGE FORM
     Route: 065
  206. DIPYRIDAMOLE [Suspect]
     Active Substance: DIPYRIDAMOLE
     Dosage: 1 DOSAGE FORM, Q12H
     Route: 065
  207. DIPYRIDAMOLE [Suspect]
     Active Substance: DIPYRIDAMOLE
     Dosage: 2 DOSAGE FORM, Q12H
     Route: 065
  208. DIPYRIDAMOLE [Suspect]
     Active Substance: DIPYRIDAMOLE
     Dosage: 75 MILLIGRAM, QD
     Route: 065
  209. DIPYRIDAMOLE [Suspect]
     Active Substance: DIPYRIDAMOLE
     Dosage: 2 DOSAGE FORM, QOD
     Route: 065
  210. DIPYRIDAMOLE [Suspect]
     Active Substance: DIPYRIDAMOLE
     Dosage: 1 DOSAGE FORM, QD
     Route: 065
  211. DIPYRIDAMOLE [Suspect]
     Active Substance: DIPYRIDAMOLE
     Dosage: UNK
     Route: 048
  212. DIPYRIDAMOLE [Suspect]
     Active Substance: DIPYRIDAMOLE
     Dosage: 0.5 DOSAGE FORM, QD
     Route: 065
  213. DIPYRIDAMOLE [Suspect]
     Active Substance: DIPYRIDAMOLE
     Dosage: 2 DOSAGE FORM
     Route: 065
  214. DIPYRIDAMOLE [Suspect]
     Active Substance: DIPYRIDAMOLE
     Dosage: 2 DOSAGE FORM, Q12H
     Route: 048
  215. HERBALS [Suspect]
     Active Substance: HERBALS
     Indication: Product used for unknown indication
     Dosage: UNK
     Route: 065
  216. AGGRENOX [Suspect]
     Active Substance: ASPIRIN\DIPYRIDAMOLE
     Indication: Cerebrovascular accident
     Dosage: 1 DOSAGE FORM, BID
     Route: 065
  217. AGGRENOX [Suspect]
     Active Substance: ASPIRIN\DIPYRIDAMOLE
     Indication: Pain
     Dosage: 2 DOSAGE FORM, QD
     Route: 065
  218. AGGRENOX [Suspect]
     Active Substance: ASPIRIN\DIPYRIDAMOLE
     Dosage: UNK, BID
     Route: 065
  219. AGGRENOX [Suspect]
     Active Substance: ASPIRIN\DIPYRIDAMOLE
     Dosage: 2 DOSAGE FORM
     Route: 065
  220. AGGRENOX [Suspect]
     Active Substance: ASPIRIN\DIPYRIDAMOLE
     Dosage: 2 DOSAGE FORM, BID
     Route: 065
  221. AGGRENOX [Suspect]
     Active Substance: ASPIRIN\DIPYRIDAMOLE
     Dosage: UNK UNK, QD
     Route: 065
  222. AGGRENOX [Suspect]
     Active Substance: ASPIRIN\DIPYRIDAMOLE
     Dosage: 75 MILLIGRAM, QD
     Route: 065
  223. AGGRENOX [Suspect]
     Active Substance: ASPIRIN\DIPYRIDAMOLE
     Dosage: 50 MILLIGRAM, QD
     Route: 065
  224. ALBUTEROL SULFATE\AMBROXOL HYDROCHLORIDE\GUAIFENESIN [Suspect]
     Active Substance: ALBUTEROL SULFATE\AMBROXOL HYDROCHLORIDE\GUAIFENESIN
     Indication: Product used for unknown indication
     Dosage: UNK
     Route: 065
  225. ATROPINE [Suspect]
     Active Substance: ATROPINE
     Indication: Coronary artery disease
     Dosage: 6 MILLIGRAM, QD
     Route: 061
  226. PAPAVERINE [Suspect]
     Active Substance: PAPAVERINE
     Indication: Chest pain
     Dosage: 75 MILLIGRAM, QD
     Route: 065
  227. PHENOBARBITAL [Suspect]
     Active Substance: PHENOBARBITAL
     Indication: Angina pectoris
     Dosage: UNK
     Route: 061
  228. AMITRIPTYLINE HYDROCHLORIDE\DIAZEPAM\PERPHENAZINE [Suspect]
     Active Substance: AMITRIPTYLINE HYDROCHLORIDE\DIAZEPAM\PERPHENAZINE
     Indication: Insomnia
     Dosage: 75 MILLIGRAM, QD
     Route: 065
  229. AMITRIPTYLINE HYDROCHLORIDE\DIAZEPAM\PERPHENAZINE [Suspect]
     Active Substance: AMITRIPTYLINE HYDROCHLORIDE\DIAZEPAM\PERPHENAZINE
     Indication: Angina pectoris
     Dosage: 50 MILLIGRAM, QD
     Route: 065
  230. AMITRIPTYLINE HYDROCHLORIDE\DIAZEPAM\PERPHENAZINE [Suspect]
     Active Substance: AMITRIPTYLINE HYDROCHLORIDE\DIAZEPAM\PERPHENAZINE
     Indication: Thyroid disorder
     Dosage: 50 MILLIGRAM
     Route: 065
  231. AMITRIPTYLINE HYDROCHLORIDE\DIAZEPAM\PERPHENAZINE [Suspect]
     Active Substance: AMITRIPTYLINE HYDROCHLORIDE\DIAZEPAM\PERPHENAZINE
     Indication: Radioactive iodine therapy
     Dosage: UNK
     Route: 048
  232. AMITRIPTYLINE HYDROCHLORIDE\DIAZEPAM\PERPHENAZINE [Suspect]
     Active Substance: AMITRIPTYLINE HYDROCHLORIDE\DIAZEPAM\PERPHENAZINE
     Indication: Pain
     Dosage: 25 MILLIGRAM, QD
     Route: 065
  233. AMITRIPTYLINE HYDROCHLORIDE\DIAZEPAM\PERPHENAZINE [Suspect]
     Active Substance: AMITRIPTYLINE HYDROCHLORIDE\DIAZEPAM\PERPHENAZINE
     Indication: Constipation
  234. AMITRIPTYLINE HYDROCHLORIDE\DIAZEPAM\PERPHENAZINE [Suspect]
     Active Substance: AMITRIPTYLINE HYDROCHLORIDE\DIAZEPAM\PERPHENAZINE
     Indication: Coronary artery disease
  235. AMITRIPTYLINE HYDROCHLORIDE\DIAZEPAM\PERPHENAZINE [Suspect]
     Active Substance: AMITRIPTYLINE HYDROCHLORIDE\DIAZEPAM\PERPHENAZINE
     Indication: Oedema
  236. AMITRIPTYLINE HYDROCHLORIDE\DIAZEPAM\PERPHENAZINE [Suspect]
     Active Substance: AMITRIPTYLINE HYDROCHLORIDE\DIAZEPAM\PERPHENAZINE
     Indication: Prophylaxis
  237. AMITRIPTYLINE HYDROCHLORIDE\DIAZEPAM\PERPHENAZINE [Suspect]
     Active Substance: AMITRIPTYLINE HYDROCHLORIDE\DIAZEPAM\PERPHENAZINE
     Indication: Duodenal ulcer
  238. AMITRIPTYLINE HYDROCHLORIDE\DIAZEPAM\PERPHENAZINE [Suspect]
     Active Substance: AMITRIPTYLINE HYDROCHLORIDE\DIAZEPAM\PERPHENAZINE
     Indication: Dementia
  239. AMITRIPTYLINE HYDROCHLORIDE\DIAZEPAM\PERPHENAZINE [Suspect]
     Active Substance: AMITRIPTYLINE HYDROCHLORIDE\DIAZEPAM\PERPHENAZINE
     Indication: Arthritis
  240. AMITRIPTYLINE HYDROCHLORIDE\DIAZEPAM\PERPHENAZINE [Suspect]
     Active Substance: AMITRIPTYLINE HYDROCHLORIDE\DIAZEPAM\PERPHENAZINE
     Indication: Chest pain
  241. CYCLOBENZAPRINE [Suspect]
     Active Substance: CYCLOBENZAPRINE
     Indication: Pain
     Dosage: 5 MILLIGRAM, BID
     Route: 065
  242. CYCLOBENZAPRINE [Suspect]
     Active Substance: CYCLOBENZAPRINE
     Indication: Fibromyalgia
     Dosage: 1.87 MILLIGRAM, QD
     Route: 065
  243. CYCLOBENZAPRINE [Suspect]
     Active Substance: CYCLOBENZAPRINE
     Indication: Seizure
     Dosage: 5 MILLIGRAM, Q8HR
     Route: 065
  244. CYCLOBENZAPRINE [Suspect]
     Active Substance: CYCLOBENZAPRINE
     Dosage: 15 MILLIGRAM, QD
     Route: 065
  245. CYCLOBENZAPRINE [Suspect]
     Active Substance: CYCLOBENZAPRINE
     Dosage: 200 MILLIGRAM, BID
     Route: 065
  246. CYCLOBENZAPRINE [Suspect]
     Active Substance: CYCLOBENZAPRINE
     Dosage: 100 MILLIGRAM, BID
     Route: 065
  247. CYCLOBENZAPRINE [Suspect]
     Active Substance: CYCLOBENZAPRINE
     Dosage: 5 MILLIGRAM, TID
     Route: 065
  248. CYCLOBENZAPRINE [Suspect]
     Active Substance: CYCLOBENZAPRINE
     Dosage: 100 MICROGRAM, Q12H
     Route: 065
  249. CYCLOBENZAPRINE [Suspect]
     Active Substance: CYCLOBENZAPRINE
     Dosage: 15 MICROGRAM, Q8HR
     Route: 065
  250. CYCLOBENZAPRINE [Suspect]
     Active Substance: CYCLOBENZAPRINE
     Dosage: 360 MICROGRAM, QD
     Route: 065
  251. CYCLOBENZAPRINE [Suspect]
     Active Substance: CYCLOBENZAPRINE
     Dosage: 200 MILLIGRAM, Q12H
     Route: 065
  252. CYCLOBENZAPRINE [Suspect]
     Active Substance: CYCLOBENZAPRINE
     Dosage: 10 MILLIGRAM, QD
     Route: 065
  253. CYCLOBENZAPRINE [Suspect]
     Active Substance: CYCLOBENZAPRINE
     Dosage: UNK
     Route: 048
  254. CYCLOBENZAPRINE [Suspect]
     Active Substance: CYCLOBENZAPRINE
     Dosage: 15 MILLIGRAM, Q8HR
     Route: 065
  255. CYCLOBENZAPRINE [Suspect]
     Active Substance: CYCLOBENZAPRINE
     Dosage: 2 MILLIGRAM, QD
     Route: 065
  256. CYCLOBENZAPRINE [Suspect]
     Active Substance: CYCLOBENZAPRINE
     Dosage: 5 MILLIGRAM
     Route: 065
  257. CYCLOBENZAPRINE [Suspect]
     Active Substance: CYCLOBENZAPRINE
     Dosage: 2 MILLIGRAM
     Route: 065
  258. CYCLOBENZAPRINE [Suspect]
     Active Substance: CYCLOBENZAPRINE
     Dosage: 15 MILLIGRAM
     Route: 065
  259. CYCLOBENZAPRINE [Suspect]
     Active Substance: CYCLOBENZAPRINE
     Dosage: 100 MILLIGRAM
     Route: 065
  260. CYCLOBENZAPRINE [Suspect]
     Active Substance: CYCLOBENZAPRINE
     Dosage: 5 MICROGRAM, Q12H
     Route: 065
  261. CYCLOBENZAPRINE [Suspect]
     Active Substance: CYCLOBENZAPRINE
     Dosage: 1.87 MICROGRAM, QD
     Route: 065
  262. CYCLOBENZAPRINE [Suspect]
     Active Substance: CYCLOBENZAPRINE
     Dosage: 5 MICROGRAM, Q8HR
     Route: 065
  263. CYCLOBENZAPRINE [Suspect]
     Active Substance: CYCLOBENZAPRINE
     Dosage: 200 MICROGRAM, Q12H
     Route: 065
  264. CYCLOBENZAPRINE [Suspect]
     Active Substance: CYCLOBENZAPRINE
     Dosage: 0.625 MILLIGRAM
     Route: 065
  265. CYCLOBENZAPRINE [Suspect]
     Active Substance: CYCLOBENZAPRINE
     Dosage: 5 MILLIGRAM, Q12H
     Route: 065
  266. CYCLOBENZAPRINE [Suspect]
     Active Substance: CYCLOBENZAPRINE
     Dosage: 10 MILLIGRAM, Q12H
     Route: 065
  267. CYCLOBENZAPRINE [Suspect]
     Active Substance: CYCLOBENZAPRINE
     Dosage: 1.87 MICROGRAM, Q12H
     Route: 065
  268. CYCLOBENZAPRINE [Suspect]
     Active Substance: CYCLOBENZAPRINE
     Dosage: 0.63 MILLIGRAM
     Route: 065
  269. CYCLOBENZAPRINE [Suspect]
     Active Substance: CYCLOBENZAPRINE
     Dosage: 5.61 MILLIGRAM, QD
     Route: 065
  270. CYCLOBENZAPRINE [Suspect]
     Active Substance: CYCLOBENZAPRINE
     Dosage: 45 MILLIGRAM
     Route: 065
  271. CYCLOBENZAPRINE [Suspect]
     Active Substance: CYCLOBENZAPRINE
     Dosage: 15 MILLIGRAM, TID
     Route: 065
  272. CYCLOBENZAPRINE [Suspect]
     Active Substance: CYCLOBENZAPRINE
     Dosage: 45 MILLIGRAM, QD
     Route: 065
  273. LEVOFLOXACIN HEMIHYDRATE [Suspect]
     Active Substance: LEVOFLOXACIN
     Indication: Urinary tract infection
     Dosage: 200 MILLIGRAM, QD
     Route: 065
  274. LEVOFLOXACIN HEMIHYDRATE [Suspect]
     Active Substance: LEVOFLOXACIN
     Dosage: 250 MILLIGRAM, QD
     Route: 065
  275. TIOTROPIUM BROMIDE MONOHYDRATE [Suspect]
     Active Substance: TIOTROPIUM BROMIDE MONOHYDRATE
     Indication: Chronic obstructive pulmonary disease
     Dosage: 18 MICROGRAM, QD
     Route: 065
  276. DULCOLAX NOS [Suspect]
     Active Substance: BISACODYL OR DOCUSATE SODIUM
     Indication: Constipation
     Dosage: 1 DOSAGE FORM, QD
     Route: 065
  277. DULCOLAX NOS [Suspect]
     Active Substance: BISACODYL OR DOCUSATE SODIUM
     Dosage: 2 DOSAGE FORM, QD
     Route: 065
  278. DULCOLAX NOS [Suspect]
     Active Substance: BISACODYL OR DOCUSATE SODIUM
     Dosage: UNK, QD
     Route: 065
  279. DULCOLAX NOS [Suspect]
     Active Substance: BISACODYL OR DOCUSATE SODIUM
     Dosage: 2 DOSAGE FORM
     Route: 065
  280. DULCOLAX NOS [Suspect]
     Active Substance: BISACODYL OR DOCUSATE SODIUM
     Dosage: 650 MILLIGRAM, QD
     Route: 065
  281. DULCOLAX NOS [Suspect]
     Active Substance: BISACODYL OR DOCUSATE SODIUM
     Dosage: 650 MILLIGRAM, QD
     Route: 048
  282. DULCOLAX NOS [Suspect]
     Active Substance: BISACODYL OR DOCUSATE SODIUM
     Dosage: UNK
     Route: 065
  283. DULCOLAX NOS [Suspect]
     Active Substance: BISACODYL OR DOCUSATE SODIUM
     Dosage: 2 DOSAGE FORM
     Route: 065
  284. MAGNESIUM HYDROXIDE [Suspect]
     Active Substance: MAGNESIUM HYDROXIDE
     Indication: Constipation
     Dosage: 1 DOSAGE FORM, BID
     Route: 065
  285. MAGNESIUM HYDROXIDE [Suspect]
     Active Substance: MAGNESIUM HYDROXIDE
     Dosage: 622 MILLIGRAM, QD
     Route: 065
  286. MAGNESIUM HYDROXIDE [Suspect]
     Active Substance: MAGNESIUM HYDROXIDE
     Dosage: UNK, QD
     Route: 065
  287. MAGNESIUM HYDROXIDE [Suspect]
     Active Substance: MAGNESIUM HYDROXIDE
     Dosage: 622 MILLIGRAM, BID
     Route: 065
  288. MAGNESIUM HYDROXIDE [Suspect]
     Active Substance: MAGNESIUM HYDROXIDE
     Dosage: 2 DOSAGE FORM, QD
     Route: 065
  289. MAGNESIUM HYDROXIDE [Suspect]
     Active Substance: MAGNESIUM HYDROXIDE
     Dosage: 1244 MILLIGRAM, QD
     Route: 065
  290. MAGNESIUM HYDROXIDE [Suspect]
     Active Substance: MAGNESIUM HYDROXIDE
     Dosage: 620 MILLIGRAM, BID
     Route: 065
  291. MAGNESIUM HYDROXIDE [Suspect]
     Active Substance: MAGNESIUM HYDROXIDE
     Dosage: UNK
     Route: 065
  292. MAGNESIUM HYDROXIDE [Suspect]
     Active Substance: MAGNESIUM HYDROXIDE
     Dosage: 1244 MILLIGRAM, BID
     Route: 065
  293. MAGNESIUM HYDROXIDE [Suspect]
     Active Substance: MAGNESIUM HYDROXIDE
     Dosage: 2 DOSAGE FORM, QD
     Route: 065
  294. MAGNESIUM HYDROXIDE [Suspect]
     Active Substance: MAGNESIUM HYDROXIDE
     Dosage: QOD
     Route: 065
  295. MAGNESIUM HYDROXIDE [Suspect]
     Active Substance: MAGNESIUM HYDROXIDE
     Dosage: 2 DOSAGE FORM, Q12H
     Route: 065
  296. MAGNESIUM HYDROXIDE [Suspect]
     Active Substance: MAGNESIUM HYDROXIDE
     Dosage: 622 MILLIGRAM, Q12H
     Route: 065
  297. MAGNESIUM HYDROXIDE [Suspect]
     Active Substance: MAGNESIUM HYDROXIDE
     Dosage: 1 DOSAGE FORM, QD
     Route: 065
  298. NITROGLYCERIN [Suspect]
     Active Substance: NITROGLYCERIN
     Indication: Coronary artery disease
     Dosage: 1 DOSAGE FORM, QD
     Route: 065
  299. NITROGLYCERIN [Suspect]
     Active Substance: NITROGLYCERIN
     Indication: Chest pain
     Dosage: 0.4 MILLIGRAM, QD
     Route: 061
  300. NITROGLYCERIN [Suspect]
     Active Substance: NITROGLYCERIN
     Indication: Angina pectoris
     Dosage: 0.6 MILLIGRAM, QD
     Route: 061
  301. NITROGLYCERIN [Suspect]
     Active Substance: NITROGLYCERIN
     Indication: Hypertension
     Dosage: 20 MILLIGRAM, QD
     Route: 065
  302. NITROGLYCERIN [Suspect]
     Active Substance: NITROGLYCERIN
     Dosage: 0.4 DOSAGE FORM, QD
     Route: 065
  303. NITROGLYCERIN [Suspect]
     Active Substance: NITROGLYCERIN
     Dosage: 6 MILLIGRAM, QD
     Route: 061
  304. NITROGLYCERIN [Suspect]
     Active Substance: NITROGLYCERIN
     Dosage: 4 MILLIGRAM
     Route: 065
  305. NITROGLYCERIN [Suspect]
     Active Substance: NITROGLYCERIN
     Dosage: 1 DOSAGE FORM, QD
     Route: 061
  306. NITROGLYCERIN [Suspect]
     Active Substance: NITROGLYCERIN
     Dosage: 1 DOSAGE FORM, QD
     Route: 061
  307. NITROGLYCERIN [Suspect]
     Active Substance: NITROGLYCERIN
     Dosage: UNK
     Route: 065
  308. NITROGLYCERIN [Suspect]
     Active Substance: NITROGLYCERIN
     Dosage: 0.6 MILLIGRAM, QD
     Route: 065
  309. NITROGLYCERIN [Suspect]
     Active Substance: NITROGLYCERIN
     Dosage: 15 MILLIGRAM, QD
     Route: 065
  310. ALBUTEROL SULFATE [Suspect]
     Active Substance: ALBUTEROL SULFATE
     Indication: Chest pain
     Dosage: 100 MILLIGRAM, QD
     Route: 065
  311. ALBUTEROL SULFATE [Suspect]
     Active Substance: ALBUTEROL SULFATE
     Indication: Angina pectoris
     Dosage: UNK
     Route: 065
  312. ALBUTEROL SULFATE [Suspect]
     Active Substance: ALBUTEROL SULFATE
     Dosage: 800 MILLIGRAM, QD
     Route: 065
  313. ALBUTEROL SULFATE [Suspect]
     Active Substance: ALBUTEROL SULFATE
     Dosage: 100 MILLIGRAM, 1 EVERY SECOND
     Route: 065
  314. ALBUTEROL SULFATE [Suspect]
     Active Substance: ALBUTEROL SULFATE
     Dosage: 200 MICROGRAM, Q6HR
     Route: 065
  315. ALBUTEROL SULFATE [Suspect]
     Active Substance: ALBUTEROL SULFATE
     Dosage: 400 MICROGRAM, Q6HR
     Route: 065
  316. ALBUTEROL SULFATE [Suspect]
     Active Substance: ALBUTEROL SULFATE
     Dosage: 200 MILLIGRAM, TID
     Route: 065
  317. ALBUTEROL SULFATE [Suspect]
     Active Substance: ALBUTEROL SULFATE
     Dosage: 100 MICROGRAM, QD
     Route: 065
  318. ALBUTEROL SULFATE [Suspect]
     Active Substance: ALBUTEROL SULFATE
     Dosage: 400 MILLIGRAM, QD
     Route: 045
  319. ALBUTEROL SULFATE [Suspect]
     Active Substance: ALBUTEROL SULFATE
     Dosage: 100 MICROGRAM, QD
     Route: 065
  320. DILTIAZEM [Suspect]
     Active Substance: DILTIAZEM
     Indication: Hypertension
     Dosage: 300 MILLIGRAM, QD
     Route: 065
  321. DILTIAZEM [Suspect]
     Active Substance: DILTIAZEM
     Indication: Coronary artery disease
     Dosage: 360 MILLIGRAM, QD
     Route: 065
  322. DILTIAZEM [Suspect]
     Active Substance: DILTIAZEM
     Indication: Insomnia
     Dosage: 350 MILLIGRAM, QD
     Route: 065
  323. DILTIAZEM [Suspect]
     Active Substance: DILTIAZEM
     Indication: Chest pain
  324. DILTIAZEM [Suspect]
     Active Substance: DILTIAZEM
     Indication: Angina pectoris
  325. AMITRIPTYLINE HYDROCHLORIDE [Suspect]
     Active Substance: AMITRIPTYLINE HYDROCHLORIDE
     Indication: Insomnia
     Dosage: 75 MILLIGRAM, QD
     Route: 065
  326. AMITRIPTYLINE HYDROCHLORIDE [Suspect]
     Active Substance: AMITRIPTYLINE HYDROCHLORIDE
     Indication: Thyroid disorder
     Dosage: 50 MILLIGRAM, QD
     Route: 065
  327. AMITRIPTYLINE HYDROCHLORIDE [Suspect]
     Active Substance: AMITRIPTYLINE HYDROCHLORIDE
     Indication: Radioactive iodine therapy
     Dosage: 75 MILLIGRAM, QD
     Route: 065
  328. AMITRIPTYLINE HYDROCHLORIDE [Suspect]
     Active Substance: AMITRIPTYLINE HYDROCHLORIDE
     Indication: Prophylaxis
     Dosage: 50 MILLIGRAM, QD
     Route: 065
  329. AMITRIPTYLINE HYDROCHLORIDE [Suspect]
     Active Substance: AMITRIPTYLINE HYDROCHLORIDE
     Indication: Pain
     Dosage: 50 MILLIGRAM, QD
     Route: 065
  330. AMITRIPTYLINE HYDROCHLORIDE [Suspect]
     Active Substance: AMITRIPTYLINE HYDROCHLORIDE
     Indication: Oedema
     Dosage: 75 MILLIGRAM, QD
     Route: 065
  331. AMITRIPTYLINE HYDROCHLORIDE [Suspect]
     Active Substance: AMITRIPTYLINE HYDROCHLORIDE
     Indication: Hypertension
     Dosage: 75 MILLIGRAM, QD
     Route: 065
  332. AMITRIPTYLINE HYDROCHLORIDE [Suspect]
     Active Substance: AMITRIPTYLINE HYDROCHLORIDE
     Indication: Fibromyalgia
     Dosage: 50 MILLIGRAM, QD
     Route: 065
  333. AMITRIPTYLINE HYDROCHLORIDE [Suspect]
     Active Substance: AMITRIPTYLINE HYDROCHLORIDE
     Indication: Duodenal ulcer
     Dosage: UNK
     Route: 065
  334. AMITRIPTYLINE HYDROCHLORIDE [Suspect]
     Active Substance: AMITRIPTYLINE HYDROCHLORIDE
     Indication: Dementia
     Dosage: 25 MILLIGRAM, Q2WEEKS
     Route: 065
  335. AMITRIPTYLINE HYDROCHLORIDE [Suspect]
     Active Substance: AMITRIPTYLINE HYDROCHLORIDE
     Indication: Coronary artery disease
     Dosage: UNK, QD
     Route: 065
  336. AMITRIPTYLINE HYDROCHLORIDE [Suspect]
     Active Substance: AMITRIPTYLINE HYDROCHLORIDE
     Indication: Constipation
  337. AMITRIPTYLINE HYDROCHLORIDE [Suspect]
     Active Substance: AMITRIPTYLINE HYDROCHLORIDE
     Indication: Chest pain
  338. AMITRIPTYLINE HYDROCHLORIDE [Suspect]
     Active Substance: AMITRIPTYLINE HYDROCHLORIDE
     Indication: Arthritis
  339. AMITRIPTYLINE HYDROCHLORIDE [Suspect]
     Active Substance: AMITRIPTYLINE HYDROCHLORIDE
     Indication: Angina pectoris
  340. LEVOFLOXACIN [Suspect]
     Active Substance: LEVOFLOXACIN
     Indication: Urinary tract infection
     Dosage: 250 MILLIGRAM, QD
     Route: 065
  341. LEVOFLOXACIN [Suspect]
     Active Substance: LEVOFLOXACIN
     Dosage: 0.88 MILLIGRAM, QD
     Route: 065
  342. LEVOFLOXACIN [Suspect]
     Active Substance: LEVOFLOXACIN
     Dosage: 250 MILLIGRAM, Q12H
     Route: 065
  343. LEVOFLOXACIN [Suspect]
     Active Substance: LEVOFLOXACIN
     Dosage: 250 MILLIGRAM, QD
     Route: 065
  344. LEVOFLOXACIN [Suspect]
     Active Substance: LEVOFLOXACIN
     Dosage: 250 MILLIGRAM
     Route: 065
  345. LEVOFLOXACIN [Suspect]
     Active Substance: LEVOFLOXACIN
     Dosage: 200 MILLIGRAM, QD
     Route: 065
  346. LEVOFLOXACIN [Suspect]
     Active Substance: LEVOFLOXACIN
     Dosage: 0.088 MILLIGRAM, QD
     Route: 065
  347. LEVOFLOXACIN [Suspect]
     Active Substance: LEVOFLOXACIN
     Dosage: 0.09 MILLIGRAM, QD
     Route: 065
  348. SPIRIVA [Suspect]
     Active Substance: TIOTROPIUM BROMIDE MONOHYDRATE
     Indication: Chronic obstructive pulmonary disease
     Dosage: 18 MICROGRAM, QD
     Route: 065
  349. SPIRIVA [Suspect]
     Active Substance: TIOTROPIUM BROMIDE MONOHYDRATE
     Dosage: 18 MICROGRAM, QD
     Route: 065
  350. SPIRIVA [Suspect]
     Active Substance: TIOTROPIUM BROMIDE MONOHYDRATE
     Dosage: UNK, QD
     Route: 065
  351. SPIRIVA [Suspect]
     Active Substance: TIOTROPIUM BROMIDE MONOHYDRATE
     Dosage: 18 MICROGRAM, QD
     Route: 065
  352. SPIRIVA [Suspect]
     Active Substance: TIOTROPIUM BROMIDE MONOHYDRATE
     Dosage: 18 MILLIGRAM, QD
     Route: 065
  353. SPIRIVA [Suspect]
     Active Substance: TIOTROPIUM BROMIDE MONOHYDRATE
     Dosage: 1 DOSAGE FORM, QD
     Route: 065
  354. SPIRIVA [Suspect]
     Active Substance: TIOTROPIUM BROMIDE MONOHYDRATE
     Dosage: UNK
     Route: 065
  355. SPIRIVA [Suspect]
     Active Substance: TIOTROPIUM BROMIDE MONOHYDRATE
     Dosage: UNK
     Route: 065
  356. SPIRIVA [Suspect]
     Active Substance: TIOTROPIUM BROMIDE MONOHYDRATE
     Dosage: 2 DOSAGE FORM, Q12H
     Route: 065
  357. SPIRIVA [Suspect]
     Active Substance: TIOTROPIUM BROMIDE MONOHYDRATE
     Dosage: 18 MICROGRAM, QD
     Route: 055
  358. NITROGLYCERIN [Suspect]
     Active Substance: NITROGLYCERIN
     Indication: Chest pain
     Dosage: 1 DOSAGE FORM, QD
     Route: 065
  359. NITROGLYCERIN [Suspect]
     Active Substance: NITROGLYCERIN
     Indication: Angina pectoris
     Dosage: 0.4 MILLIGRAM, QD
     Route: 065
  360. NITROGLYCERIN [Suspect]
     Active Substance: NITROGLYCERIN
     Indication: Coronary artery disease
     Dosage: 0.6 MILLIGRAM, QD
     Route: 065
  361. NITROGLYCERIN [Suspect]
     Active Substance: NITROGLYCERIN
     Dosage: UNK, QD
     Route: 065
  362. NITROGLYCERIN [Suspect]
     Active Substance: NITROGLYCERIN
     Dosage: 1 DOSAGE FORM, QD
     Route: 065
  363. NITROGLYCERIN [Suspect]
     Active Substance: NITROGLYCERIN
     Dosage: 0.4 MILLIGRAM, QD
     Route: 065
  364. NITROGLYCERIN [Suspect]
     Active Substance: NITROGLYCERIN
     Dosage: 0.6 MILLIGRAM, QD
     Route: 061
  365. MORPHINE SULFATE [Suspect]
     Active Substance: MORPHINE SULFATE
     Indication: Pain
     Dosage: 10 MILLIGRAM, QD
     Route: 065
  366. MORPHINE SULFATE [Suspect]
     Active Substance: MORPHINE SULFATE
     Indication: Fibromyalgia
     Dosage: 10 MILLIGRAM, QD
     Route: 065
  367. MORPHINE SULFATE [Suspect]
     Active Substance: MORPHINE SULFATE
     Dosage: 100 MILLIGRAM, QD
     Route: 065
  368. OXCARBAZEPINE [Suspect]
     Active Substance: OXCARBAZEPINE
     Indication: Product used for unknown indication
     Dosage: UNK
     Route: 065
  369. CAFFEINE [Suspect]
     Active Substance: CAFFEINE
     Indication: Cerebrovascular accident
     Dosage: 50 MILLIGRAM, QD
     Route: 065
  370. CAFFEINE [Suspect]
     Active Substance: CAFFEINE
     Indication: Angina pectoris
     Dosage: UNK, QD
     Route: 065
  371. CAFFEINE [Suspect]
     Active Substance: CAFFEINE
     Indication: Pain
     Dosage: 650 MILLIGRAM, QD
     Route: 065
  372. CAFFEINE [Suspect]
     Active Substance: CAFFEINE
     Dosage: 60 MILLIGRAM, QD
     Route: 065
  373. CAFFEINE [Suspect]
     Active Substance: CAFFEINE
     Dosage: 600 MILLIGRAM, QD
     Route: 065
  374. EXCEDRIN [Suspect]
     Active Substance: ACETAMINOPHEN\ASPIRIN\CAFFEINE
     Indication: Pain
     Dosage: 650 MILLIGRAM, QD
     Route: 065
  375. EXCEDRIN [Suspect]
     Active Substance: ACETAMINOPHEN\ASPIRIN\CAFFEINE
     Indication: Hypertension
  376. POLYSORBATE 85 [Suspect]
     Active Substance: POLYSORBATE 85
     Indication: Insomnia
     Dosage: UNK
     Route: 065
  377. BISACODYL [Suspect]
     Active Substance: BISACODYL
     Indication: Chronic obstructive pulmonary disease
     Dosage: 2 DOSAGE FORM
     Route: 065
  378. BISACODYL [Suspect]
     Active Substance: BISACODYL
     Indication: Constipation
     Dosage: 2 DOSAGE FORM
     Route: 065
  379. BISACODYL [Suspect]
     Active Substance: BISACODYL
     Dosage: 2 DOSAGE FORM, QD
     Route: 065
  380. BISACODYL [Suspect]
     Active Substance: BISACODYL
     Dosage: 1 DOSAGE FORM, QD
     Route: 065
  381. BISACODYL [Suspect]
     Active Substance: BISACODYL
     Dosage: UNK UNK, QD
     Route: 048
  382. ASCORBIC ACID\CRANBERRY [Suspect]
     Active Substance: ASCORBIC ACID\CRANBERRY
     Indication: Product used for unknown indication
     Dosage: 1500 MILLIGRAM, QD
     Route: 065
  383. SALICYLAMIDE [Suspect]
     Active Substance: SALICYLAMIDE
     Indication: Product used for unknown indication
     Dosage: UNK
     Route: 065
  384. PHENOLPHTHALEIN [Suspect]
     Active Substance: PHENOLPHTHALEIN
     Indication: Pain
     Dosage: UNK
     Route: 065
  385. QUININE [Suspect]
     Active Substance: QUININE
     Indication: Pain
     Dosage: UNK
     Route: 065
  386. FLEXERIL [Suspect]
     Active Substance: CYCLOBENZAPRINE HYDROCHLORIDE
     Indication: Pain
     Dosage: 5 MILLIGRAM, Q8HR
     Route: 065
  387. FLEXERIL [Suspect]
     Active Substance: CYCLOBENZAPRINE HYDROCHLORIDE
     Indication: Fibromyalgia
     Dosage: 5 MILLIGRAM, Q12H
     Route: 065
  388. FLEXERIL [Suspect]
     Active Substance: CYCLOBENZAPRINE HYDROCHLORIDE
     Dosage: 1.87 MILLIGRAM, QD
     Route: 065
  389. FLEXERIL [Suspect]
     Active Substance: CYCLOBENZAPRINE HYDROCHLORIDE
     Dosage: 5 MILLIGRAM, QD
     Route: 065
  390. QUINAPRIL HYDROCHLORIDE [Suspect]
     Active Substance: QUINAPRIL HYDROCHLORIDE
     Indication: Hypertension
     Dosage: 20 MILLIGRAM, QD
     Route: 065
  391. QUINAPRIL HYDROCHLORIDE [Suspect]
     Active Substance: QUINAPRIL HYDROCHLORIDE
     Indication: Coronary artery disease
     Dosage: UNK
     Route: 065
  392. QUINAPRIL HYDROCHLORIDE [Suspect]
     Active Substance: QUINAPRIL HYDROCHLORIDE
     Indication: Seizure prophylaxis
     Dosage: 40 MILLIGRAM, QD
     Route: 065
  393. QUINAPRIL HYDROCHLORIDE [Suspect]
     Active Substance: QUINAPRIL HYDROCHLORIDE
     Indication: Pain
     Dosage: 200 MILLIGRAM, Q6HR
     Route: 065
  394. QUINAPRIL HYDROCHLORIDE [Suspect]
     Active Substance: QUINAPRIL HYDROCHLORIDE
     Indication: Insomnia
     Dosage: UNK
     Route: 065
  395. QUINAPRIL HYDROCHLORIDE [Suspect]
     Active Substance: QUINAPRIL HYDROCHLORIDE
     Indication: Fibromyalgia
     Dosage: 40 MILLIGRAM
     Route: 065
  396. QUINAPRIL HYDROCHLORIDE [Suspect]
     Active Substance: QUINAPRIL HYDROCHLORIDE
     Indication: Cerebrovascular accident
     Dosage: 200 MILLIGRAM, BID
     Route: 065
  397. QUINAPRIL HYDROCHLORIDE [Suspect]
     Active Substance: QUINAPRIL HYDROCHLORIDE
     Indication: Angina pectoris
  398. QUINAPRIL HYDROCHLORIDE [Suspect]
     Active Substance: QUINAPRIL HYDROCHLORIDE
     Indication: Chest pain
  399. PHENYLEPHRINE HYDROCHLORIDE [Suspect]
     Active Substance: PHENYLEPHRINE HYDROCHLORIDE
     Indication: Pain
     Dosage: UNK
     Route: 065
  400. EX-LAX REGULAR STRENGTH STIMULANT LAXATIVE [Suspect]
     Active Substance: SENNOSIDES
     Indication: Pain
     Dosage: UNK
     Route: 065
  401. DIAZEPAM [Suspect]
     Active Substance: DIAZEPAM
     Indication: Insomnia
     Dosage: UNK
     Route: 065
  402. DIAZEPAM [Suspect]
     Active Substance: DIAZEPAM
     Indication: Coronary artery disease
  403. DIAZEPAM [Suspect]
     Active Substance: DIAZEPAM
     Indication: Angina pectoris
  404. PERSANTINE [Suspect]
     Active Substance: DIPYRIDAMOLE
     Indication: Cerebrovascular accident
     Dosage: 1 DOSAGE FORM, QD
     Route: 065
  405. PERSANTINE [Suspect]
     Active Substance: DIPYRIDAMOLE
     Dosage: 1 DOSAGE FORM, Q12H
     Route: 065
  406. PERSANTINE [Suspect]
     Active Substance: DIPYRIDAMOLE
     Dosage: UNK
     Route: 065
  407. PERSANTINE [Suspect]
     Active Substance: DIPYRIDAMOLE
     Dosage: 2 DOSAGE FORM, BID
     Route: 065
  408. PERSANTINE [Suspect]
     Active Substance: DIPYRIDAMOLE
     Dosage: 2 DOSAGE FORM, QD
     Route: 065
  409. PERSANTINE [Suspect]
     Active Substance: DIPYRIDAMOLE
     Dosage: 1 DOSAGE FORM, BID
     Route: 065
  410. POLYSORBATE 40 [Suspect]
     Active Substance: POLYSORBATE 40
     Indication: Insomnia
     Dosage: UNK
     Route: 065
  411. PERPHENAZINE [Suspect]
     Active Substance: PERPHENAZINE
     Indication: Insomnia
     Dosage: 75 MILLIGRAM, QD
     Route: 065
  412. DOCUSATE SODIUM\PHENOLPHTHALEIN [Suspect]
     Active Substance: DOCUSATE SODIUM\PHENOLPHTHALEIN
     Indication: Pain
     Route: 065
  413. ALOE VERA LEAF [Suspect]
     Active Substance: ALOE VERA LEAF
     Indication: Product used for unknown indication
     Route: 065
  414. QUINAPRIL HYDROCHLORIDE AND HYDROCHLOROTHIAZIDE [Suspect]
     Active Substance: HYDROCHLOROTHIAZIDE\QUINAPRIL HYDROCHLORIDE
     Indication: Hypertension
     Dosage: 20 MILLIGRAM, QD
     Route: 065
  415. QUINAPRIL HYDROCHLORIDE AND HYDROCHLOROTHIAZIDE [Suspect]
     Active Substance: HYDROCHLOROTHIAZIDE\QUINAPRIL HYDROCHLORIDE
     Indication: Coronary artery disease
     Dosage: 40 MILLIGRAM, QD
     Route: 065
  416. QUINAPRIL HYDROCHLORIDE AND HYDROCHLOROTHIAZIDE [Suspect]
     Active Substance: HYDROCHLOROTHIAZIDE\QUINAPRIL HYDROCHLORIDE
     Indication: Angina pectoris
  417. QUINAPRIL HYDROCHLORIDE AND HYDROCHLOROTHIAZIDE [Suspect]
     Active Substance: HYDROCHLOROTHIAZIDE\QUINAPRIL HYDROCHLORIDE
     Indication: Chest pain
  418. AMITRIPTYLINE HYDROCHLORIDE [Suspect]
     Active Substance: AMITRIPTYLINE HYDROCHLORIDE
     Indication: Insomnia
     Dosage: UNK
     Route: 065
  419. PERPHENAZINE AND AMITRIPTYLINE HYDROCHLORIDE [Suspect]
     Active Substance: AMITRIPTYLINE HYDROCHLORIDE\PERPHENAZINE
     Indication: Insomnia
     Dosage: UNK
     Route: 065
  420. ALBUTEROL [Suspect]
     Active Substance: ALBUTEROL
     Indication: Product used for unknown indication
     Dosage: UNK
     Route: 065
  421. HERBALS [Suspect]
     Active Substance: HERBALS
     Indication: Product used for unknown indication
     Dosage: UNK
     Route: 065
  422. PERPHENAZINE HYDROCHLORIDE [Suspect]
     Active Substance: PERPHENAZINE HYDROCHLORIDE
     Indication: Product used for unknown indication
     Dosage: UNK
     Route: 065
  423. AMLODIPINE\TELMISARTAN [Suspect]
     Active Substance: AMLODIPINE\TELMISARTAN
     Indication: Hypertension
     Dosage: UNK
     Route: 065
  424. AMLODIPINE\TELMISARTAN [Suspect]
     Active Substance: AMLODIPINE\TELMISARTAN
     Indication: Angina pectoris
  425. AMLODIPINE\TELMISARTAN [Suspect]
     Active Substance: AMLODIPINE\TELMISARTAN
     Indication: Coronary artery disease
  426. ASPIRIN ALUMINUM [Suspect]
     Active Substance: ASPIRIN ALUMINUM
     Indication: Constipation
     Dosage: 620 MILLIGRAM, BID
     Route: 065
  427. TELMISARTAN [Suspect]
     Active Substance: TELMISARTAN
     Indication: Product used for unknown indication
     Dosage: UNK
     Route: 065
  428. DROTAVERINE [Suspect]
     Active Substance: DROTAVERINE
     Indication: Product used for unknown indication
     Dosage: UNK
     Route: 065
  429. AMINOPHYLLINE [Suspect]
     Active Substance: AMINOPHYLLINE
     Indication: Product used for unknown indication
     Dosage: UNK
     Route: 065
  430. AMBROXOL HYDROCHLORIDE [Suspect]
     Active Substance: AMBROXOL HYDROCHLORIDE
     Indication: Product used for unknown indication
     Dosage: UNK
     Route: 065
  431. TIOTROPIUM BROMIDE [Suspect]
     Active Substance: TIOTROPIUM BROMIDE
     Indication: Chronic obstructive pulmonary disease
     Dosage: 18 MICROGRAM, QD
     Route: 065
  432. TIOTROPIUM BROMIDE [Suspect]
     Active Substance: TIOTROPIUM BROMIDE
     Indication: Asthma
     Dosage: 18 MILLIGRAM, QD
     Route: 065
  433. TIOTROPIUM BROMIDE [Suspect]
     Active Substance: TIOTROPIUM BROMIDE
     Dosage: UNK
     Route: 048
  434. TIOTROPIUM BROMIDE [Suspect]
     Active Substance: TIOTROPIUM BROMIDE
     Dosage: UNK
     Route: 065
  435. TIOTROPIUM BROMIDE [Suspect]
     Active Substance: TIOTROPIUM BROMIDE
     Dosage: 18 MICROGRAM
     Route: 065
  436. CRANBERRY [Suspect]
     Active Substance: CRANBERRY
     Indication: Product used for unknown indication
     Route: 065
  437. CALCIUM ASCORBATE [Suspect]
     Active Substance: CALCIUM ASCORBATE
     Indication: Product used for unknown indication
     Route: 065
  438. ACETAMINOPHEN\CAFFEINE [Suspect]
     Active Substance: ACETAMINOPHEN\CAFFEINE
     Indication: Pain
     Dosage: 650 MILLIGRAM, QD
     Route: 065
  439. ACETAMINOPHEN\CAFFEINE [Suspect]
     Active Substance: ACETAMINOPHEN\CAFFEINE
     Dosage: 600 MILLIGRAM, QD
     Route: 065
  440. ACETAMINOPHEN\CAFFEINE [Suspect]
     Active Substance: ACETAMINOPHEN\CAFFEINE
     Dosage: 50 MILLIGRAM, QD
     Route: 065
  441. ACETAMINOPHEN\CAFFEINE [Suspect]
     Active Substance: ACETAMINOPHEN\CAFFEINE
     Dosage: 60 MILLIGRAM, QD
     Route: 065
  442. OXCARBAZEPINE [Suspect]
     Active Substance: OXCARBAZEPINE
     Indication: Product used for unknown indication
     Route: 065
  443. DULCOLAX BALANCE [Suspect]
     Active Substance: POLYETHYLENE GLYCOL 3350
     Indication: Product used for unknown indication
     Dosage: UNK
     Route: 065
  444. SODIUM PICOSULFATE [Suspect]
     Active Substance: SODIUM PICOSULFATE
     Indication: Constipation
     Dosage: 2 DOSAGE FORM, Q4WEEKS
     Route: 065
  445. SODIUM PICOSULFATE [Suspect]
     Active Substance: SODIUM PICOSULFATE
     Dosage: UNK
     Route: 065
  446. SODIUM PICOSULFATE [Suspect]
     Active Substance: SODIUM PICOSULFATE
     Dosage: UNK
     Route: 065
  447. SODIUM PICOSULFATE [Suspect]
     Active Substance: SODIUM PICOSULFATE
     Dosage: 2 DOSAGE FORM, QD
     Route: 065
  448. ACETAMINOSALOL\ASPIRIN\CAFFEINE [Suspect]
     Active Substance: ACETAMINOSALOL\ASPIRIN\CAFFEINE
     Indication: Product used for unknown indication
     Route: 065
  449. CHONDROITIN SULFATE (BOVINE)\GLUCOSAMINE SULFATE [Suspect]
     Active Substance: CHONDROITIN SULFATE (BOVINE)\GLUCOSAMINE SULFATE
     Indication: Product used for unknown indication
     Dosage: UNK
     Route: 065
  450. OMEPRAZOLE MAGNESIUM [Suspect]
     Active Substance: OMEPRAZOLE MAGNESIUM
     Indication: Product used for unknown indication
     Dosage: 20 MILLIGRAM, QD
     Route: 048
  451. CRANBERRY JUICE [Suspect]
     Active Substance: CRANBERRY JUICE
     Indication: Product used for unknown indication
     Dosage: 500 MILLIGRAM, Q8HR
     Route: 065
  452. CRANBERRY [Suspect]
     Active Substance: CRANBERRY
     Indication: Product used for unknown indication
     Dosage: UNK
     Route: 065
  453. CRANBERRY [Suspect]
     Active Substance: CRANBERRY
     Indication: Bladder disorder
     Dosage: 500 MILLIGRAM
     Route: 065
  454. CRANBERRY [Suspect]
     Active Substance: CRANBERRY
     Indication: Chronic obstructive pulmonary disease
     Dosage: 500 MILLIGRAM, Q8HR
     Route: 065
  455. CRANBERRY [Suspect]
     Active Substance: CRANBERRY
     Dosage: 500 MILLIGRAM, TID
     Route: 065
  456. CRANBERRY [Suspect]
     Active Substance: CRANBERRY
     Dosage: UNK
     Route: 065
  457. CRANBERRY [Suspect]
     Active Substance: CRANBERRY
     Dosage: 500 MILLIGRAM, QD
     Route: 065
  458. CRANBERRY [Suspect]
     Active Substance: CRANBERRY
     Dosage: 1200 MILLIGRAM
     Route: 065
  459. QUININE FORMATE [Suspect]
     Active Substance: QUININE FORMATE
     Indication: Product used for unknown indication
     Dosage: UNK
     Route: 065
  460. GLYCERIN [Suspect]
     Active Substance: GLYCERIN
     Indication: Product used for unknown indication
     Route: 065
  461. POTASSIUM SORBATE [Suspect]
     Active Substance: POTASSIUM SORBATE
     Indication: Product used for unknown indication
     Route: 065
  462. HYDROCHLOROTHIAZIDE [Suspect]
     Active Substance: HYDROCHLOROTHIAZIDE
     Indication: Product used for unknown indication
     Dosage: UNK
     Route: 065
  463. ASPIRIN\DIPYRIDAMOLE [Suspect]
     Active Substance: ASPIRIN\DIPYRIDAMOLE
     Indication: Cerebrovascular accident
     Dosage: UNK
     Route: 065
  464. ASPIRIN\DIPYRIDAMOLE [Suspect]
     Active Substance: ASPIRIN\DIPYRIDAMOLE
     Dosage: 1 DOSAGE FORM, Q12H
     Route: 065
  465. CRANBERRY [Suspect]
     Active Substance: CRANBERRY
     Indication: Product used for unknown indication
     Dosage: 500 MILLIGRAM, Q8HR
     Route: 065
  466. AMLODIPINE MESYLATE [Suspect]
     Active Substance: AMLODIPINE MESYLATE
     Indication: Hypertension
     Dosage: UNK
     Route: 065
  467. AMLODIPINE MESYLATE [Suspect]
     Active Substance: AMLODIPINE MESYLATE
     Indication: Coronary artery disease
  468. AMLODIPINE MESYLATE [Suspect]
     Active Substance: AMLODIPINE MESYLATE
     Indication: Chest pain
  469. AMLODIPINE MESYLATE [Suspect]
     Active Substance: AMLODIPINE MESYLATE
     Indication: Angina pectoris
  470. GLUCOSAMINE SULFATE [Suspect]
     Active Substance: GLUCOSAMINE SULFATE
     Indication: Pain
     Dosage: 500 MILLIGRAM, BID
     Route: 065
  471. ACETAMINOPHEN [Concomitant]
     Active Substance: ACETAMINOPHEN
     Indication: Product used for unknown indication
     Dosage: 100 MILLIGRAM
     Route: 065
  472. ACETAMINOPHEN [Concomitant]
     Active Substance: ACETAMINOPHEN
     Dosage: UNK
     Route: 065
  473. ACETAMINOPHEN [Concomitant]
     Active Substance: ACETAMINOPHEN
     Dosage: 650 MILLIGRAM, QD
     Route: 065
  474. HERBALS\PLANTAGO OVATA LEAF [Concomitant]
     Active Substance: HERBALS\PLANTAGO OVATA LEAF
     Dosage: UNK
     Route: 065
  475. ZINC [Concomitant]
     Active Substance: ZINC
     Dosage: UNK
     Route: 065
  476. ASPIRIN SODIUM [Concomitant]
     Active Substance: ASPIRIN SODIUM
     Route: 065
  477. VITAMIN C [Concomitant]
     Active Substance: ASCORBIC ACID
     Route: 065
  478. ASPIRIN SODIUM [Concomitant]
     Active Substance: ASPIRIN SODIUM
  479. VACCINIUM MACROCARPON;ZINC [Concomitant]
  480. CRANBERRY [Concomitant]
     Active Substance: CRANBERRY
     Indication: Bladder disorder
     Dosage: 500 MILLIGRAM, TID
     Route: 065
  481. CRANBERRY [Concomitant]
     Active Substance: CRANBERRY
     Dosage: 500 MILLIGRAM, Q8HR
     Route: 065
  482. CODEINE PHOSPHATE [Concomitant]
     Active Substance: CODEINE PHOSPHATE
  483. GLYCERIN\POTASSIUM [Concomitant]
     Active Substance: GLYCERIN\POTASSIUM
     Indication: Constipation
     Dosage: UNK
     Route: 065
  484. PSYLLIUM HUSK [Concomitant]
     Active Substance: PSYLLIUM HUSK
     Route: 065
  485. PYROPHOSPHORIC ACID [Concomitant]
     Active Substance: PYROPHOSPHORIC ACID
  486. FIBER [Concomitant]
     Active Substance: PSYLLIUM HUSK
  487. SODIUM BENZOATE [Concomitant]
     Active Substance: SODIUM BENZOATE
  488. ZINC SULFATE [Concomitant]
     Active Substance: ZINC SULFATE
  489. ASPIRIN [Concomitant]
     Active Substance: ASPIRIN
     Indication: Product used for unknown indication
     Route: 065
  490. CALCIUM POLYCARBOPHIL [Concomitant]
     Active Substance: CALCIUM POLYCARBOPHIL
     Dosage: UNK
     Route: 065
  491. DIAZEPAM [Suspect]
     Active Substance: DIAZEPAM

REACTIONS (19)
  - Balance disorder [Recovered/Resolved]
  - Blood calcium decreased [Recovered/Resolved]
  - Cognitive disorder [Recovered/Resolved]
  - Depressed level of consciousness [Recovered/Resolved]
  - Dyspnoea [Recovered/Resolved]
  - Creatinine renal clearance decreased [Recovered/Resolved]
  - Mobility decreased [Recovered/Resolved]
  - Pain [Recovered/Resolved]
  - Sedation [Recovered/Resolved]
  - Sedation complication [Recovered/Resolved]
  - Constipation [Recovered/Resolved]
  - Toxicity to various agents [Recovered/Resolved]
  - Orthostatic hypotension [Recovered/Resolved]
  - Fall [Recovered/Resolved]
  - Hypotension [Recovered/Resolved]
  - Drug interaction [Recovered/Resolved]
  - Renal function test abnormal [Recovered/Resolved]
  - Multiple drug therapy [Recovered/Resolved]
  - Product use in unapproved indication [Unknown]
